FAERS Safety Report 5733924-3 (Version None)
Quarter: 2008Q2

REPORT INFORMATION
  Report Type: 
  Country: None (occurrence: None)
  Receive Date: 20080509
  Receipt Date: 20080228
  Transmission Date: 20081010
  Serious: No
  Sender: FDA-Public Use
  Company Number: US-BOEHRINGER INGELHEIM GMBH, GERMANY-2007-BP-24454BP

PATIENT
  Sex: Male

DRUGS (5)
  1. MIRAPEX [Suspect]
     Indication: RESTLESS LEGS SYNDROME
     Route: 048
     Dates: start: 20070601
  2. ARICEPT [Suspect]
  3. FLOMAX [Concomitant]
  4. SYNTHROID [Concomitant]
  5. ISOSORBIDE DINITRATE [Concomitant]

REACTIONS (11)
  - ASTHENIA [None]
  - CHOKING [None]
  - DIVERTICULITIS [None]
  - DIZZINESS [None]
  - ERYTHEMA [None]
  - FREQUENT BOWEL MOVEMENTS [None]
  - HYPOTENSION [None]
  - JOINT SWELLING [None]
  - OESOPHAGEAL STENOSIS [None]
  - RECTAL HAEMORRHAGE [None]
  - SYNCOPE [None]
